FAERS Safety Report 11497156 (Version 1)
Quarter: 2015Q3

REPORT INFORMATION
  Report Type: Spontaneous
  Country: CN (occurrence: CN)
  Receive Date: 20150911
  Receipt Date: 20150911
  Transmission Date: 20151125
  Serious: Yes (Death, Hospitalization)
  Sender: FDA-Public Use
  Company Number: CN-BAYER-2015-417326

PATIENT
  Age: 75 Year
  Sex: Male

DRUGS (3)
  1. SORAFENIB (RAF KINASE INHIBITOR) [Suspect]
     Active Substance: SORAFENIB
     Indication: CLEAR CELL RENAL CELL CARCINOMA
     Route: 048
  2. PREDNISOLONE. [Concomitant]
     Active Substance: PREDNISOLONE
     Indication: EOSINOPHILIA
     Route: 048
  3. CEFOPERAZONE W/SULBACTAM [Concomitant]
     Active Substance: CEFOPERAZONE\SULBACTAM

REACTIONS (3)
  - Multi-organ failure [Fatal]
  - Drug ineffective [None]
  - General physical health deterioration [None]

NARRATIVE: CASE EVENT DATE: 2014
